FAERS Safety Report 12185052 (Version 1)
Quarter: 2016Q1

REPORT INFORMATION
  Report Type: Spontaneous
  Country: US (occurrence: US)
  Receive Date: 20160316
  Receipt Date: 20160316
  Transmission Date: 20160526
  Serious: Yes (Other)
  Sender: FDA-Public Use
  Company Number: US-SA-2016SA052545

PATIENT
  Sex: Male

DRUGS (1)
  1. ICY HOT MEDICATED NO MESS APPLICATOR [Suspect]
     Active Substance: MENTHOL
     Route: 065
     Dates: start: 20160308, end: 20160308

REACTIONS (2)
  - Thermal burn [Unknown]
  - Pain [Unknown]

NARRATIVE: CASE EVENT DATE: 20160308
